FAERS Safety Report 5761357-2 (Version None)
Quarter: 2008Q2

REPORT INFORMATION
  Report Type: 
  Country: None (occurrence: None)
  Receive Date: 20080606
  Receipt Date: 20080530
  Transmission Date: 20081010
  Serious: Yes (Hospitalization, Other)
  Sender: FDA-Public Use
  Company Number: US-ROCHE-450691

PATIENT
  Sex: Female
  Weight: 57.2 kg

DRUGS (8)
  1. ACCUTANE [Suspect]
     Route: 048
     Dates: start: 19980321
  2. ACCUTANE [Suspect]
     Route: 048
     Dates: end: 19980801
  3. ACCUTANE [Suspect]
     Route: 048
     Dates: start: 19990420, end: 19990520
  4. BIRTH CONTROL PILLS [Concomitant]
     Indication: ORAL CONTRACEPTION
     Route: 048
  5. GENORA [Concomitant]
     Dosage: STRENGTH AND FORMULATION REPORTED AS 1/50 TABLETS.
     Route: 048
     Dates: start: 19971125
  6. GENORA [Concomitant]
     Dosage: STRENGTH AND FORMULATION REPORTED AS 1/50 TABLETS.
     Route: 048
     Dates: start: 19971125
  7. GENORA [Concomitant]
     Dosage: STRENGTH AND FORMULATION REPORTED AS 1/50 TABLETS.
     Route: 048
     Dates: start: 19971125
  8. CEPHALEXIN [Concomitant]
     Dosage: DOSAGE REGIMEN REPORTED AS ONE Q DAY.
     Route: 048
     Dates: start: 19980727

REACTIONS (13)
  - AFFECT LABILITY [None]
  - COLITIS [None]
  - COLITIS ULCERATIVE [None]
  - CONJUNCTIVITIS [None]
  - CROHN'S DISEASE [None]
  - HEPATIC STEATOSIS [None]
  - ILEITIS [None]
  - INFLAMMATORY BOWEL DISEASE [None]
  - INTERVERTEBRAL DISC DEGENERATION [None]
  - IRRITABLE BOWEL SYNDROME [None]
  - OSTEOPENIA [None]
  - PEPTIC ULCER [None]
  - WEIGHT DECREASED [None]
